FAERS Safety Report 18341194 (Version 1)
Quarter: 2020Q4

REPORT INFORMATION
  Report Type: Spontaneous
  Country: GB (occurrence: GB)
  Receive Date: 20201003
  Receipt Date: 20201003
  Transmission Date: 20210113
  Serious: Yes (Hospitalization)
  Sender: FDA-Public Use
  Company Number: GB-TEVA-2020-GB-1833975

PATIENT
  Age: 92 Year
  Sex: Female

DRUGS (7)
  1. CANDESARTAN. [Concomitant]
     Active Substance: CANDESARTAN
  2. LORAZEPAM. [Concomitant]
     Active Substance: LORAZEPAM
  3. ESOMEPRAZOLE. [Concomitant]
     Active Substance: ESOMEPRAZOLE MAGNESIUM
  4. RIVASTIGMINE. [Concomitant]
     Active Substance: RIVASTIGMINE
  5. PREGABALIN. [Concomitant]
     Active Substance: PREGABALIN
  6. QUETIAPINE. [Suspect]
     Active Substance: QUETIAPINE
     Route: 048
  7. CO-CARELDOPA [Concomitant]
     Active Substance: CARBIDOPA\LEVODOPA

REACTIONS (1)
  - Parkinson^s disease [Recovering/Resolving]
